FAERS Safety Report 8428596-3 (Version None)
Quarter: 2012Q2

REPORT INFORMATION
  Report Type: 
  Country: None (occurrence: None)
  Receive Date: 20120606
  Receipt Date: 20120606
  Transmission Date: 20120825
  Serious: Yes (Disabling)
  Sender: FDA-Public Use
  Company Number: None

PATIENT
  Sex: Male
  Weight: 73 kg

DRUGS (1)
  1. PROPECIA [Suspect]
     Indication: ANDROGENETIC ALOPECIA
     Dosage: 1 MG. ORALLY EVERY DAY
     Route: 048
     Dates: start: 19990715, end: 20071201

REACTIONS (2)
  - FIBROSIS [None]
  - PEYRONIE'S DISEASE [None]
